FAERS Safety Report 9442083 (Version 1)
Quarter: 2013Q3

REPORT INFORMATION
  Report Type: Spontaneous
  Country: US (occurrence: US)
  Receive Date: 20130806
  Receipt Date: 20130806
  Transmission Date: 20140515
  Serious: No
  Sender: FDA-Public Use
  Company Number: US-PFIZER INC-2013228126

PATIENT
  Age: 47 Year
  Sex: Female
  Weight: 70.3 kg

DRUGS (1)
  1. VENLAFAXINE HCL [Suspect]
     Indication: MENOPAUSAL SYMPTOMS
     Dosage: 1 DF (75MG) , DAILY
     Route: 065

REACTIONS (4)
  - Drug ineffective for unapproved indication [Recovered/Resolved]
  - Hot flush [Recovered/Resolved]
  - Night sweats [Recovered/Resolved]
  - Off label use [Unknown]
